FAERS Safety Report 17456769 (Version 2)
Quarter: 2020Q1

REPORT INFORMATION
  Report Type: Spontaneous
  Country: US (occurrence: US)
  Receive Date: 20200225
  Receipt Date: 20200317
  Transmission Date: 20200409
  Serious: Yes (Hospitalization)
  Sender: FDA-Public Use
  Company Number: US-UCBSA-2020005909

PATIENT
  Sex: Male
  Weight: 96.7 kg

DRUGS (23)
  1. COLACE [Concomitant]
     Active Substance: DOCUSATE SODIUM
     Indication: PRODUCT USED FOR UNKNOWN INDICATION
  2. LOSARTAN. [Concomitant]
     Active Substance: LOSARTAN
     Indication: PRODUCT USED FOR UNKNOWN INDICATION
     Dosage: 50 MG DAILY
  3. LOVASTATIN. [Concomitant]
     Active Substance: LOVASTATIN
     Indication: PRODUCT USED FOR UNKNOWN INDICATION
  4. NUPLAZID [Suspect]
     Active Substance: PIMAVANSERIN TARTRATE
     Indication: HALLUCINATION
  5. SINEMET [Concomitant]
     Active Substance: CARBIDOPA\LEVODOPA
     Indication: PRODUCT USED FOR UNKNOWN INDICATION
     Dosage: UNK
  6. MIRALAX [Concomitant]
     Active Substance: POLYETHYLENE GLYCOL 3350
     Indication: PRODUCT USED FOR UNKNOWN INDICATION
     Dosage: UNK
  7. INBRIJA [Suspect]
     Active Substance: LEVODOPA
     Indication: ON AND OFF PHENOMENON
     Dosage: 84 MG (CONTENTS OF TWO 42 MG CAPSULES), BY INHALATION UP TO 5 TIMES DAILY
     Dates: start: 20190501
  8. VITAMIN D [COLECALCIFEROL] [Concomitant]
     Active Substance: CHOLECALCIFEROL
     Indication: PRODUCT USED FOR UNKNOWN INDICATION
  9. ICAPS MULTIVITAMIN FORMULA [Concomitant]
     Indication: PRODUCT USED FOR UNKNOWN INDICATION
  10. NEUPRO [Suspect]
     Active Substance: ROTIGOTINE
     Indication: PRODUCT USED FOR UNKNOWN INDICATION
     Dosage: 4 MILLIGRAM, ONCE DAILY (QD)
     Route: 062
  11. ASA [Concomitant]
     Active Substance: ASPIRIN
     Indication: PRODUCT USED FOR UNKNOWN INDICATION
  12. MAGNESIUM [Concomitant]
     Active Substance: MAGNESIUM
     Indication: PRODUCT USED FOR UNKNOWN INDICATION
  13. SERTRALINE [Concomitant]
     Active Substance: SERTRALINE HYDROCHLORIDE
     Indication: PRODUCT USED FOR UNKNOWN INDICATION
  14. NUPLAZID [Suspect]
     Active Substance: PIMAVANSERIN TARTRATE
     Indication: PARKINSON^S DISEASE
     Dosage: 34 MILLIGRAM, ONCE DAILY (QD)
     Route: 048
  15. CARBIDOPA AND LEVODOPA [Concomitant]
     Active Substance: CARBIDOPA\LEVODOPA
     Indication: PRODUCT USED FOR UNKNOWN INDICATION
     Dosage: 25/100 ONE AND HALF TABLLETS EVERY 3 HOURS
  16. METFORMIN [Concomitant]
     Active Substance: METFORMIN HYDROCHLORIDE
     Indication: PRODUCT USED FOR UNKNOWN INDICATION
     Dosage: UNK
  17. MYOBLOC [DIACEREIN] [Concomitant]
     Indication: SALIVARY HYPERSECRETION
     Dosage: UNK
  18. INBRIJA [Suspect]
     Active Substance: LEVODOPA
     Dosage: 84 MILLIGRAM, 3X/DAY (TID)/BASED AS NEEDED
  19. INBRIJA [Suspect]
     Active Substance: LEVODOPA
     Dosage: 1-2 INHALATION
  20. NUPLAZID [Suspect]
     Active Substance: PIMAVANSERIN TARTRATE
     Indication: PARKINSON^S DISEASE PSYCHOSIS
     Dosage: 34 MILLIGRAM, ONCE DAILY (QD)
     Route: 048
     Dates: start: 20171110
  21. NUPLAZID [Suspect]
     Active Substance: PIMAVANSERIN TARTRATE
     Indication: DELUSION
  22. ZOLOFT [Concomitant]
     Active Substance: SERTRALINE HYDROCHLORIDE
     Indication: PRODUCT USED FOR UNKNOWN INDICATION
  23. KEFLEX [Concomitant]
     Active Substance: CEPHALEXIN
     Indication: URINARY TRACT INFECTION

REACTIONS (18)
  - Asthenia [Recovering/Resolving]
  - Ataxia [Recovering/Resolving]
  - General physical condition abnormal [Recovering/Resolving]
  - Dyskinesia [Unknown]
  - Motor dysfunction [Recovering/Resolving]
  - Muscle disorder [Recovering/Resolving]
  - Depressed mood [Unknown]
  - Sepsis [Recovered/Resolved]
  - Decreased activity [Recovering/Resolving]
  - Salivary hypersecretion [Unknown]
  - Dyspnoea [Recovered/Resolved]
  - Asthenia [Unknown]
  - Urinary tract infection [Recovered/Resolved]
  - Coordination abnormal [Recovering/Resolving]
  - Anaemia [Recovering/Resolving]
  - Oral candidiasis [Recovering/Resolving]
  - Cough [Recovered/Resolved]
  - Intentional product misuse [Unknown]
